FAERS Safety Report 7439228-5 (Version None)
Quarter: 2011Q2

REPORT INFORMATION
  Report Type: 
  Country: None (occurrence: None)
  Receive Date: 20110421
  Receipt Date: 20110421
  Transmission Date: 20111010
  Serious: Yes (Other)
  Sender: FDA-Public Use
  Company Number: None

PATIENT
  Sex: Female

DRUGS (1)
  1. VISINE-A [Suspect]
     Dates: start: 20110405, end: 20110405

REACTIONS (3)
  - BLISTER [None]
  - SKIN IRRITATION [None]
  - APPLICATION SITE PAIN [None]
